FAERS Safety Report 4827776-3 (Version None)
Quarter: 2005Q4

REPORT INFORMATION
  Report Type: 
  Country: None (occurrence: None)
  Receive Date: 20051110
  Receipt Date: 20051104
  Transmission Date: 20060501
  Serious: Yes (Other)
  Sender: FDA-Public Use
  Company Number: 005992

PATIENT
  Age: 53 Year
  Sex: Female

DRUGS (7)
  1. MEDROXYPROGESTERONE ACETATE [Suspect]
     Dosage: ORAL
     Route: 048
     Dates: start: 19990513, end: 20050308
  2. PREMPRO [Suspect]
     Dosage: ORAL
     Route: 048
     Dates: start: 19981020, end: 19990302
  3. PREMARIN [Suspect]
     Dosage: ORAL
     Route: 048
     Dates: start: 19990513, end: 20050221
  4. ESTRATEST [Suspect]
     Dosage: ORAL
     Route: 048
     Dates: start: 19981228, end: 19990128
  5. ORTHO-EST [Suspect]
     Dosage: ORAL
     Route: 048
     Dates: start: 19990629, end: 19991028
  6. FEMHRT [Suspect]
     Dosage: ORAL
     Route: 048
     Dates: start: 20020516, end: 20020801
  7. MENES (ESTROGENS ESTERIFIED) [Suspect]
     Dosage: ORAL
     Route: 048
     Dates: start: 20021202, end: 20030301

REACTIONS (1)
  - BREAST CANCER FEMALE [None]
